FAERS Safety Report 7340444-1 (Version None)
Quarter: 2011Q1

REPORT INFORMATION
  Report Type: 
  Country: None (occurrence: None)
  Receive Date: 20110309
  Receipt Date: 20110301
  Transmission Date: 20110831
  Serious: Yes (Other)
  Sender: FDA-Public Use
  Company Number: US-JNJFOC-20110203110

PATIENT
  Sex: Female

DRUGS (5)
  1. NUCYNTA [Suspect]
     Indication: HEADACHE
     Dosage: EVERY 6 HOURS AS NEEDED
     Route: 048
  2. FENTANYL [Concomitant]
     Indication: MIGRAINE
     Route: 062
  3. UNKNOWN MEDICATION [Concomitant]
     Indication: MIGRAINE
     Route: 065
  4. NUCYNTA [Suspect]
     Indication: MIGRAINE
     Dosage: EVERY 6 HOURS AS NEEDED
     Route: 048
  5. UNKNOWN MEDICATION [Concomitant]
     Route: 065

REACTIONS (1)
  - DEPRESSION [None]
